FAERS Safety Report 8423063-5 (Version None)
Quarter: 2012Q2

REPORT INFORMATION
  Report Type: 
  Country: None (occurrence: None)
  Receive Date: 20120608
  Receipt Date: 20120524
  Transmission Date: 20120825
  Serious: No
  Sender: FDA-Public Use
  Company Number: US-ASTRAZENECA-2012SE16485

PATIENT
  Age: 75 Year
  Sex: Female

DRUGS (3)
  1. NEXIUM [Suspect]
     Route: 048
  2. SYMBICORT [Concomitant]
  3. PRILOSEC [Concomitant]

REACTIONS (9)
  - MULTIPLE ALLERGIES [None]
  - FLATULENCE [None]
  - LOW DENSITY LIPOPROTEIN INCREASED [None]
  - BLOOD CHOLESTEROL ABNORMAL [None]
  - DYSPEPSIA [None]
  - ASTHMA [None]
  - DRUG DOSE OMISSION [None]
  - DYSPNOEA [None]
  - PAIN [None]
